FAERS Safety Report 9369904 (Version 1)
Quarter: 2013Q2

REPORT INFORMATION
  Report Type: Spontaneous
  Country: GB (occurrence: GB)
  Receive Date: 20130626
  Receipt Date: 20130626
  Transmission Date: 20140414
  Serious: Yes (Other)
  Sender: FDA-Public Use
  Company Number: GB-PFIZER INC-2013187238

PATIENT
  Age: 34 Year
  Sex: Male
  Weight: 98.8 kg

DRUGS (10)
  1. SERTRALINE HCL [Suspect]
     Dosage: DOSE TITRATED UP TO 150MG DAILY
     Dates: start: 2012, end: 20130516
  2. DIAZEPAM [Concomitant]
     Dosage: UNK
     Dates: start: 20130211, end: 20130612
  3. LEVETIRACETAM [Concomitant]
     Dosage: UNK
     Dates: start: 20130211
  4. RAMIPRIL [Concomitant]
     Dosage: UNK
     Dates: start: 20130211
  5. TRAMADOL [Concomitant]
     Dosage: UNK
     Dates: start: 20130211, end: 20130612
  6. FOLIC ACID [Concomitant]
     Dosage: UNK
     Dates: start: 20130308, end: 20130612
  7. LANSOPRAZOLE [Concomitant]
     Dosage: UNK
     Dates: start: 20130308, end: 20130612
  8. RANITIDINE [Concomitant]
     Dosage: UNK
     Dates: start: 20130308, end: 20130612
  9. AQUEOUS CREAM [Concomitant]
     Dosage: UNK
     Dates: start: 20130529
  10. LAXIDO [Concomitant]
     Dosage: UNK
     Dates: start: 20130529, end: 20130530

REACTIONS (2)
  - Photosensitivity reaction [Unknown]
  - Sunburn [Unknown]
